FAERS Safety Report 26139251 (Version 1)
Quarter: 2025Q4

REPORT INFORMATION
  Report Type: Spontaneous
  Country: EU (occurrence: EU)
  Receive Date: 20251210
  Receipt Date: 20251210
  Transmission Date: 20260117
  Serious: Yes (Other)
  Sender: ROCHE
  Company Number: EU-ROCHE-10000454112

PATIENT
  Age: 31 Year
  Sex: Female

DRUGS (8)
  1. RITUXIMAB [Suspect]
     Active Substance: RITUXIMAB
     Indication: Dermatomyositis
     Dates: start: 201801, end: 2021
  2. PREDNISOLONE [Concomitant]
     Active Substance: PREDNISOLONE
     Route: 048
  3. MINOCYCLINE [Concomitant]
     Active Substance: MINOCYCLINE HYDROCHLORIDE
  4. MYCOPHENOLATE MOFETIL [Concomitant]
     Active Substance: MYCOPHENOLATE MOFETIL
  5. PAMIDRONATE [Concomitant]
     Active Substance: PAMIDRONATE DISODIUM
  6. ABATACEPT [Concomitant]
     Active Substance: ABATACEPT
  7. UPADACITINIB [Concomitant]
     Active Substance: UPADACITINIB
  8. IXEKIZUMAB [Concomitant]
     Active Substance: IXEKIZUMAB

REACTIONS (1)
  - Secondary immunodeficiency [Unknown]
